FAERS Safety Report 9135370 (Version 1)
Quarter: 2013Q1

REPORT INFORMATION
  Report Type: Spontaneous
  Country: US (occurrence: US)
  Receive Date: 20130304
  Receipt Date: 20130304
  Transmission Date: 20140127
  Serious: No
  Sender: FDA-Public Use
  Company Number: US-ENDO PHARMACEUTICALS INC.-ENDC20110199

PATIENT
  Age: 62 Year
  Sex: Female

DRUGS (4)
  1. ENDOCET [Suspect]
     Indication: PAIN
     Dosage: 120MG/3900MG
     Route: 048
     Dates: start: 20110620, end: 201107
  2. ATACAND [Concomitant]
     Indication: BLOOD PRESSURE
     Dosage: UNK
  3. VERAPAMIL [Concomitant]
     Indication: BLOOD PRESSURE
     Dosage: UNK
  4. STEROID [Concomitant]
     Indication: ADDISON^S DISEASE
     Dosage: UNK

REACTIONS (5)
  - Injury [Recovered/Resolved]
  - Laceration [Recovering/Resolving]
  - Dysphonia [Not Recovered/Not Resolved]
  - Wound infection [Not Recovered/Not Resolved]
  - Blood pressure increased [Not Recovered/Not Resolved]
